FAERS Safety Report 16796304 (Version 2)
Quarter: 2019Q4

REPORT INFORMATION
  Report Type: Spontaneous
  Country: US (occurrence: US)
  Receive Date: 20190911
  Receipt Date: 20191015
  Transmission Date: 20200122
  Serious: Yes (Other)
  Sender: FDA-Public Use
  Company Number: US-GLAXOSMITHKLINE-US2019GSK164832

PATIENT
  Sex: Female

DRUGS (3)
  1. PREVACID [Suspect]
     Active Substance: LANSOPRAZOLE
     Indication: DYSPEPSIA
     Dosage: UNK UNK, QD
     Route: 065
  2. PREVACID [Suspect]
     Active Substance: LANSOPRAZOLE
     Indication: DYSPEPSIA
     Dosage: UNK UNK, QD
     Route: 065
  3. OMEPRAZOLE. [Suspect]
     Active Substance: OMEPRAZOLE
     Indication: DYSPEPSIA
     Dosage: 20 MG, QD
     Route: 048

REACTIONS (16)
  - Renal failure [Unknown]
  - Renal cyst [Unknown]
  - Renal impairment [Unknown]
  - Renal hypertension [Unknown]
  - Urinary incontinence [Unknown]
  - Nocturia [Unknown]
  - Hypertensive nephropathy [Unknown]
  - Urine odour abnormal [Unknown]
  - Renal injury [Unknown]
  - Chronic kidney disease [Unknown]
  - Nephrosclerosis [Unknown]
  - Haematuria [Unknown]
  - Nephrogenic anaemia [Unknown]
  - Dysuria [Unknown]
  - Nephropathy [Not Recovered/Not Resolved]
  - Pollakiuria [Unknown]
